FAERS Safety Report 10595190 (Version 1)
Quarter: 2014Q4

REPORT INFORMATION
  Report Type: Spontaneous
  Country: US (occurrence: None)
  Receive Date: 20141118
  Receipt Date: 20141118
  Transmission Date: 20150529
  Serious: Yes (Hospitalization)
  Sender: FDA-Public Use
  Company Number: AXC-2014-000690

PATIENT
  Age: 4 Year
  Sex: Female

DRUGS (5)
  1. IPRATROPIUM BROMIDE. [Concomitant]
     Active Substance: IPRATROPIUM BROMIDE
  2. DORNASE ALFA (DORNASE ALFA) INHALER [Concomitant]
  3. BECLOMETHASONE (BECLOMATHASONE DIPROPIONATE) INHALER [Concomitant]
  4. HYPERTONIC SALINE SOLUTION (SODIUM CHLORIDE) AEROSOL (SPRAY AND INHALATION) [Concomitant]
  5. SOURCECF [Suspect]
     Active Substance: VITAMINS
     Indication: CYSTIC FIBROSIS
     Dosage: (9.254 IU), FEQUENCY UNKNOWN

REACTIONS (10)
  - Hydronephrosis [None]
  - Polyuria [None]
  - Hypercalcaemia [None]
  - Hypervitaminosis A [None]
  - Blood calcium decreased [None]
  - Vomiting [None]
  - Renal impairment [None]
  - Nephrocalcinosis [None]
  - Blood phosphorus decreased [None]
  - Drug intolerance [None]
